FAERS Safety Report 5967991-9 (Version None)
Quarter: 2008Q4

REPORT INFORMATION
  Report Type: 
  Country: None (occurrence: None)
  Receive Date: 20081126
  Receipt Date: 20081118
  Transmission Date: 20090506
  Serious: Yes (Other)
  Sender: FDA-Public Use
  Company Number: US-ASTRAZENECA-2008UW23380

PATIENT
  Age: 51 Year
  Sex: Male
  Weight: 83.9 kg

DRUGS (17)
  1. ZOLADEX [Suspect]
     Indication: PROSTATE CANCER
     Route: 058
     Dates: start: 20081020
  2. ZOMIG [Concomitant]
  3. TOPROL-XL [Concomitant]
     Route: 048
  4. TOPROL-XL [Concomitant]
     Route: 048
  5. NORVASC [Concomitant]
  6. LIPITOR [Concomitant]
  7. PREVACID [Concomitant]
  8. MOBIC [Concomitant]
  9. CLARITIN-D [Concomitant]
  10. PROSCAR [Concomitant]
  11. TRAMADOL HCL [Concomitant]
     Indication: PAIN
     Dosage: AS NEEDED
  12. LOPROX [Concomitant]
     Indication: RASH
     Dosage: AS NEEDED
     Route: 061
  13. TYLENOL (CAPLET) [Concomitant]
     Indication: PAIN
     Route: 048
  14. BACLOFEN [Concomitant]
  15. EPIPEN [Concomitant]
     Dosage: 0.3 MG/0.3 ML
     Route: 030
  16. CLINDAMYCIN HCL [Concomitant]
     Dosage: ONE TO TWO TIMES A DAY
  17. ALLEGRA D 24 HOUR [Concomitant]
     Indication: MULTIPLE ALLERGIES
     Dosage: 180 MG - 240 MG AS NEEDED, DO NOT TAKE ALONG WITH CLARITIN

REACTIONS (8)
  - BIPOLAR DISORDER [None]
  - DELUSIONAL DISORDER, UNSPECIFIED TYPE [None]
  - EYE SWELLING [None]
  - GENERALISED ANXIETY DISORDER [None]
  - HEADACHE [None]
  - PSYCHOTIC DISORDER [None]
  - SCHIZOPHRENIA [None]
  - SOMATOFORM DISORDER [None]
